FAERS Safety Report 7216969-6 (Version None)
Quarter: 2011Q1

REPORT INFORMATION
  Report Type: 
  Country: None (occurrence: None)
  Receive Date: 20110105
  Receipt Date: 20110105
  Transmission Date: 20110831
  Serious: No
  Sender: FDA-Public Use
  Company Number: None

PATIENT
  Age: 27 Year
  Sex: Female
  Weight: 70.3075 kg

DRUGS (1)
  1. MIRENA [Suspect]

REACTIONS (3)
  - ABDOMINAL PAIN [None]
  - DYSSTASIA [None]
  - DYSPAREUNIA [None]
